FAERS Safety Report 12497129 (Version 3)
Quarter: 2016Q3

REPORT INFORMATION
  Report Type: Spontaneous
  Country: VE (occurrence: VE)
  Receive Date: 20160624
  Receipt Date: 20160803
  Transmission Date: 20161109
  Serious: Yes (Life-Threatening, Hospitalization, Other)
  Sender: FDA-Public Use
  Company Number: PHHY2016VE087183

PATIENT
  Sex: Female

DRUGS (4)
  1. FORADIL [Suspect]
     Active Substance: FORMOTEROL FUMARATE
     Indication: CHRONIC OBSTRUCTIVE PULMONARY DISEASE
     Dosage: 24 UG, QD
     Route: 055
  2. MIFLONIDE [Suspect]
     Active Substance: BUDESONIDE
     Indication: CHRONIC OBSTRUCTIVE PULMONARY DISEASE
     Dosage: 400 UG, QD
     Route: 055
  3. FORADIL [Suspect]
     Active Substance: FORMOTEROL FUMARATE
     Indication: RESPIRATORY FAILURE
  4. MIFLONIDE [Suspect]
     Active Substance: BUDESONIDE
     Indication: RESPIRATORY FAILURE
     Dosage: 800 UG, QD
     Route: 055

REACTIONS (14)
  - Dyspnoea [Recovering/Resolving]
  - Asphyxia [Recovering/Resolving]
  - Malaise [Not Recovered/Not Resolved]
  - Feeling abnormal [Not Recovered/Not Resolved]
  - Blood urine present [Unknown]
  - Hypokinesia [Unknown]
  - Product use issue [Unknown]
  - Delirium [Not Recovered/Not Resolved]
  - General physical health deterioration [Unknown]
  - Chronic obstructive pulmonary disease [Recovering/Resolving]
  - Infrequent bowel movements [Unknown]
  - Lung disorder [Unknown]
  - Dysstasia [Unknown]
  - Asthma [Recovering/Resolving]
